FAERS Safety Report 9715993 (Version 1)
Quarter: 2013Q4

REPORT INFORMATION
  Report Type: Spontaneous
  Country: US (occurrence: None)
  Receive Date: 20131126
  Receipt Date: 20131126
  Transmission Date: 20140711
  Serious: Yes (Other)
  Sender: FDA-Public Use
  Company Number: None

PATIENT
  Age: 61 Year
  Sex: Male

DRUGS (3)
  1. STIVARGA 40 MG BAYER [Suspect]
     Indication: COLON CANCER
     Route: 048
     Dates: start: 20130909, end: 20131107
  2. PANTOPRAZOLE [Concomitant]
  3. HYDROCODONE/APAP [Concomitant]

REACTIONS (1)
  - Abdominal pain upper [None]
